FAERS Safety Report 9847865 (Version 2)
Quarter: 2014Q1

REPORT INFORMATION
  Report Type: Report from Study
  Country: GB (occurrence: GB)
  Receive Date: 20140128
  Receipt Date: 20140219
  Transmission Date: 20141002
  Serious: Yes (Other)
  Sender: FDA-Public Use
  Company Number: GB-009507513-1401GBR011625

PATIENT
  Age: 62 Year
  Sex: Female
  Weight: 50 kg

DRUGS (3)
  1. ALENDRONATE SODIUM [Suspect]
     Indication: OSTEOPOROSIS
     Dosage: UNK, QW
     Route: 048
     Dates: start: 20110628
  2. MK-0000 (281) [Suspect]
     Dosage: UNK
  3. ADCAL-D3 [Concomitant]
     Indication: OSTEOPOROSIS
     Dosage: UNK, QD
     Dates: start: 20110628

REACTIONS (1)
  - Foot fracture [Recovered/Resolved]
